FAERS Safety Report 6432153-8 (Version None)
Quarter: 2009Q4

REPORT INFORMATION
  Report Type: 
  Country: None (occurrence: None)
  Receive Date: 20091109
  Receipt Date: 20091105
  Transmission Date: 20100525
  Serious: Yes (Death, Hospitalization)
  Sender: FDA-Public Use
  Company Number: GR-BRISTOL-MYERS SQUIBB COMPANY-14794838

PATIENT
  Age: 60 Year
  Sex: Male

DRUGS (6)
  1. ABILIFY [Suspect]
     Indication: PSYCHOTIC DISORDER
     Dosage: A HALF OF THE TABLET 10 MG THERAPY DATES:4 MONTHS
     Route: 048
     Dates: start: 20090501
  2. LARGACTIL [Concomitant]
  3. SALOSPIR [Concomitant]
  4. LASIX [Concomitant]
  5. PLAVIX [Concomitant]
  6. NEXIUM [Concomitant]

REACTIONS (4)
  - CYANOSIS [None]
  - DEATH [None]
  - DYSPNOEA [None]
  - OEDEMA [None]
